FAERS Safety Report 4652494-4 (Version None)
Quarter: 2005Q2

REPORT INFORMATION
  Report Type: 
  Country: None (occurrence: None)
  Receive Date: 20050502
  Receipt Date: 20050420
  Transmission Date: 20051028
  Serious: Yes (Hospitalization)
  Sender: FDA-Public Use
  Company Number: HQWYE191422APR05

PATIENT
  Age: 30 Year
  Sex: Male
  Weight: 99.88 kg

DRUGS (1)
  1. EFFEXOR XR [Suspect]
     Indication: DEPRESSION
     Dosage: ORAL
     Route: 048
     Dates: start: 20050416, end: 20050416

REACTIONS (9)
  - AGITATION [None]
  - DYSPHONIA [None]
  - FEELING ABNORMAL [None]
  - HYPERHIDROSIS [None]
  - MANIA [None]
  - OVERDOSE [None]
  - PRESSURE OF SPEECH [None]
  - SPEECH DISORDER [None]
  - UNEVALUABLE EVENT [None]
